FAERS Safety Report 4350698-1 (Version None)
Quarter: 2004Q2

REPORT INFORMATION
  Report Type: 
  Country: None (occurrence: None)
  Receive Date: 20040428
  Receipt Date: 20040422
  Transmission Date: 20050107
  Serious: Yes (Death)
  Sender: FDA-Public Use
  Company Number: TCI2004A01797

PATIENT
  Sex: Male

DRUGS (2)
  1. ACTOS [Suspect]
     Indication: DIABETES MELLITUS
     Dosage: 30 MG (30 MG, 1 D)  PER ORAL
     Route: 048
     Dates: start: 20040401, end: 20040401
  2. INSULIN [Concomitant]

REACTIONS (1)
  - MYOCARDIAL INFARCTION [None]
